FAERS Safety Report 25687862 (Version 3)
Quarter: 2025Q4

REPORT INFORMATION
  Report Type: Spontaneous
  Country: JP (occurrence: JP)
  Receive Date: 20250817
  Receipt Date: 20251017
  Transmission Date: 20260117
  Serious: Yes (Hospitalization, Other)
  Sender: BRISTOL-MYERS SQUIBB COMPANY
  Company Number: JP-BRISTOL-MYERS SQUIBB COMPANY-2025-105346

PATIENT
  Age: 78 Year
  Sex: Male
  Weight: 64.5 kg

DRUGS (2)
  1. YERVOY [Suspect]
     Active Substance: IPILIMUMAB
     Indication: Hepatocellular carcinoma
     Dates: start: 20250710, end: 20250710
  2. OPDIVO [Suspect]
     Active Substance: NIVOLUMAB
     Indication: Hepatocellular carcinoma
     Dates: start: 20250710, end: 20250710

REACTIONS (5)
  - Skin disorder [Not Recovered/Not Resolved]
  - Abdominal pain upper [Recovering/Resolving]
  - Hepatitis [Recovering/Resolving]
  - Platelet count decreased [Not Recovered/Not Resolved]
  - Amylase increased [Not Recovered/Not Resolved]

NARRATIVE: CASE EVENT DATE: 20250724
